FAERS Safety Report 5371328-6 (Version None)
Quarter: 2007Q2

REPORT INFORMATION
  Report Type: 
  Country: None (occurrence: None)
  Receive Date: 20070615
  Receipt Date: 20061222
  Transmission Date: 20071010
  Serious: Yes (Other)
  Sender: FDA-Public Use
  Company Number: 200618005US

PATIENT
  Age: 50 Year
  Sex: Female
  Weight: 86 kg

DRUGS (10)
  1. LANTUS [Suspect]
     Indication: DIABETES MELLITUS NON-INSULIN-DEPENDENT
     Dosage: 32 U QD
     Dates: start: 20010101
  2. OPTICLIK [Suspect]
     Dosage: 32 U QD
     Dates: start: 20060601
  3. NOVOLOG [Concomitant]
  4. NOVOLOG [Concomitant]
  5. CLOPIDOGREL (PLAVIX 01220701/) [Concomitant]
  6. ZOCOR [Concomitant]
  7. CAPTOPRIL [Concomitant]
  8. METOPROLOL SUCCINATE [Concomitant]
  9. DIAZEPAM [Concomitant]
  10. PARACETAMOL, DEXTROPROPOXYPHENE NAPSILATE (DARVOCET-N) [Concomitant]

REACTIONS (2)
  - BLOOD GLUCOSE INCREASED [None]
  - POLLAKIURIA [None]
